FAERS Safety Report 13879437 (Version 1)
Quarter: 2017Q3

REPORT INFORMATION
  Report Type: Spontaneous
  Country: US (occurrence: US)
  Receive Date: 20170817
  Receipt Date: 20170817
  Transmission Date: 20171127
  Serious: No
  Sender: FDA-Public Use
  Company Number: US-TEIKOKU PHARMA USA-TPU2017-00388

PATIENT
  Sex: Female

DRUGS (6)
  1. LIDODERM [Suspect]
     Active Substance: LIDOCAINE
     Indication: OSTEOPOROSIS
     Dosage: 2 PATCHES APPLIED TO LOWER BACK ONE ON EACH SIDE FOR UNDER 12 HOURS, OFF FOR AT LEAST 12 HOURS
     Route: 061
  2. LIDODERM [Suspect]
     Active Substance: LIDOCAINE
     Indication: MOBILITY DECREASED
  3. SYNTHROID [Concomitant]
     Active Substance: LEVOTHYROXINE SODIUM
  4. OSTEOPOROSIS MEDICATIONS [Concomitant]
     Indication: OSTEOPOROSIS
  5. LIDODERM [Suspect]
     Active Substance: LIDOCAINE
     Indication: LUMBAR SPINAL STENOSIS
     Dosage: 1 PATCH APPLIED TO ONE SIDE OF BACK FOR UNDER 12 HOURS, THEN OFF FOR AT LEAST 12 HOURS.
     Route: 061
  6. CALCIUM [Concomitant]
     Active Substance: CALCIUM

REACTIONS (1)
  - Pain [Not Recovered/Not Resolved]
